FAERS Safety Report 24393210 (Version 1)
Quarter: 2024Q4

REPORT INFORMATION
  Report Type: Spontaneous
  Country: US (occurrence: None)
  Receive Date: 20241003
  Receipt Date: 20241003
  Transmission Date: 20250115
  Serious: Yes (Other)
  Sender: Public
  Company Number: None

PATIENT
  Age: 48 Year
  Sex: Female
  Weight: 63 kg

DRUGS (1)
  1. LAMOTRIGINE EXTENDED RELEASE [Suspect]
     Active Substance: LAMOTRIGINE
     Indication: Seizure
     Dates: start: 20230429

REACTIONS (7)
  - Memory impairment [None]
  - Fine motor skill dysfunction [None]
  - Coordination abnormal [None]
  - Balance disorder [None]
  - Vertigo [None]
  - Yawning [None]
  - Retching [None]

NARRATIVE: CASE EVENT DATE: 20230501
